FAERS Safety Report 9757546 (Version 82)
Quarter: 2021Q2

REPORT INFORMATION
  Report Type: Other
  Country: CA (occurrence: CA)
  Receive Date: 20131216
  Receipt Date: 20210511
  Transmission Date: 20210717
  Serious: Yes (Life-Threatening, Hospitalization, Other)
  Sender: FDA-Public Use
  Company Number: CA-ROCHE-1104692

PATIENT
  Age: 74 Year
  Sex: Female
  Weight: 57.8 kg

DRUGS (36)
  1. ACTEMRA [Suspect]
     Active Substance: TOCILIZUMAB
     Route: 042
     Dates: start: 20120330
  2. ACTEMRA [Suspect]
     Active Substance: TOCILIZUMAB
     Route: 042
     Dates: start: 20130222
  3. PLAVIX [Suspect]
     Active Substance: CLOPIDOGREL BISULFATE
     Indication: PRODUCT USED FOR UNKNOWN INDICATION
     Route: 065
     Dates: start: 2015
  4. METHADONE [Suspect]
     Active Substance: METHADONE HYDROCHLORIDE
     Indication: BACK PAIN
     Route: 065
     Dates: start: 2020
  5. ARTHROTEC FORTE [Concomitant]
     Active Substance: DICLOFENAC SODIUM\MISOPROSTOL
  6. VENTOLIN [Concomitant]
     Active Substance: ALBUTEROL SULFATE
     Dates: end: 2014
  7. VITAMIN C [Concomitant]
     Active Substance: ASCORBIC ACID
  8. ACTEMRA [Suspect]
     Active Substance: TOCILIZUMAB
     Dosage: EXPIRY DATES NOT PROVIDED ON PIR
     Route: 042
     Dates: start: 20140822, end: 20210330
  9. METHOTREXATE. [Suspect]
     Active Substance: METHOTREXATE
     Indication: PRODUCT USED FOR UNKNOWN INDICATION
     Route: 065
  10. ACTEMRA [Suspect]
     Active Substance: TOCILIZUMAB
     Indication: RHEUMATOID ARTHRITIS
     Route: 042
     Dates: start: 20111021, end: 20131101
  11. ACTEMRA [Suspect]
     Active Substance: TOCILIZUMAB
     Route: 042
     Dates: start: 20130322
  12. ACTEMRA [Suspect]
     Active Substance: TOCILIZUMAB
     Route: 042
     Dates: start: 20150918
  13. RITUXAN [Suspect]
     Active Substance: RITUXIMAB
     Indication: RHEUMATOID ARTHRITIS
     Dosage: FREQUENCY: DAY 1 + 15
     Route: 042
     Dates: start: 20110214, end: 20110323
  14. HYDROCHLOROTHIAZIDE. [Suspect]
     Active Substance: HYDROCHLOROTHIAZIDE
     Indication: OEDEMA
  15. PULMICORT TURBUHALER [Concomitant]
     Active Substance: BUDESONIDE
  16. SYMBICORT [Concomitant]
     Active Substance: BUDESONIDE\FORMOTEROL FUMARATE DIHYDRATE
  17. ACTEMRA [Suspect]
     Active Substance: TOCILIZUMAB
     Route: 042
     Dates: start: 20180608
  18. CENTRUM SELECT 50+ [Concomitant]
     Active Substance: VITAMINS
  19. MOXIFLOXACIN. [Suspect]
     Active Substance: MOXIFLOXACIN
     Indication: PRODUCT USED FOR UNKNOWN INDICATION
     Route: 065
  20. PREDNISONE. [Concomitant]
     Active Substance: PREDNISONE
     Dates: start: 20140630
  21. OLUMIANT [Concomitant]
     Active Substance: BARICITINIB
  22. ACTEMRA [Suspect]
     Active Substance: TOCILIZUMAB
     Route: 042
     Dates: start: 20150807
  23. HYDROCHLOROTHIAZIDE. [Suspect]
     Active Substance: HYDROCHLOROTHIAZIDE
     Indication: PRODUCT USED FOR UNKNOWN INDICATION
     Route: 065
  24. FOLIC ACID. [Concomitant]
     Active Substance: FOLIC ACID
  25. SPIRIVA [Concomitant]
     Active Substance: TIOTROPIUM BROMIDE MONOHYDRATE
  26. LORAZEPAM. [Concomitant]
     Active Substance: LORAZEPAM
  27. ROSUVASTATIN. [Concomitant]
     Active Substance: ROSUVASTATIN
  28. COVERSYL [Concomitant]
     Active Substance: PERINDOPRIL
  29. PREDNISONE. [Concomitant]
     Active Substance: PREDNISONE
     Dates: start: 20140930
  30. MAGNESIUM [Concomitant]
     Active Substance: MAGNESIUM
  31. ASPIRIN. [Concomitant]
     Active Substance: ASPIRIN
     Dosage: LOW DOSE
     Dates: start: 20140630
  32. THEOPHYLLINE [Concomitant]
     Active Substance: THEOPHYLLINE ANHYDROUS
     Indication: HYPERSENSITIVITY
  33. VITAMIN D3 [Concomitant]
     Active Substance: CHOLECALCIFEROL
  34. METOPROLOL. [Concomitant]
     Active Substance: METOPROLOL
  35. CALCIUM [Concomitant]
     Active Substance: CALCIUM
  36. IRON [Concomitant]
     Active Substance: IRON

REACTIONS (63)
  - Nasal congestion [Not Recovered/Not Resolved]
  - Hyperhidrosis [Unknown]
  - Sleep apnoea syndrome [Unknown]
  - Pneumonia [Unknown]
  - Localised infection [Not Recovered/Not Resolved]
  - Arthralgia [Unknown]
  - Haemorrhage [Unknown]
  - Allergic cough [Not Recovered/Not Resolved]
  - Drug ineffective [Unknown]
  - Oedema [Unknown]
  - Sinusitis [Not Recovered/Not Resolved]
  - Myocardial infarction [Unknown]
  - Blood pressure increased [Unknown]
  - Sinusitis [Recovering/Resolving]
  - Stress [Unknown]
  - Viral infection [Recovered/Resolved]
  - Skin laceration [Not Recovered/Not Resolved]
  - Hypertension [Unknown]
  - Pulmonary mass [Unknown]
  - Dementia [Not Recovered/Not Resolved]
  - Cataract [Unknown]
  - Tooth abscess [Unknown]
  - Fatigue [Unknown]
  - Peripheral swelling [Unknown]
  - Dysphonia [Unknown]
  - Food allergy [Unknown]
  - Infection [Unknown]
  - Toothache [Unknown]
  - Heart rate increased [Unknown]
  - Drug ineffective [Unknown]
  - Delusion [Unknown]
  - Weight increased [Unknown]
  - Nasopharyngitis [Not Recovered/Not Resolved]
  - Lower respiratory tract infection [Unknown]
  - Blood iron decreased [Unknown]
  - Blood pressure diastolic decreased [Unknown]
  - Cough [Unknown]
  - Pharyngitis [Not Recovered/Not Resolved]
  - Sinus pain [Unknown]
  - Off label use [Unknown]
  - Rales [Unknown]
  - Back pain [Unknown]
  - Blood pressure systolic increased [Unknown]
  - Pain in extremity [Unknown]
  - Infusion related reaction [Unknown]
  - Hypersensitivity [Not Recovered/Not Resolved]
  - Skin abrasion [Unknown]
  - Swelling [Not Recovered/Not Resolved]
  - Weight decreased [Not Recovered/Not Resolved]
  - Haemoglobin decreased [Recovering/Resolving]
  - Blood pressure increased [Unknown]
  - Blood pressure systolic abnormal [Unknown]
  - Joint swelling [Not Recovered/Not Resolved]
  - Ear pain [Unknown]
  - Pain [Recovering/Resolving]
  - Drug hypersensitivity [Unknown]
  - Body temperature increased [Unknown]
  - Chest pain [Not Recovered/Not Resolved]
  - Arthritis [Not Recovered/Not Resolved]
  - Blood pressure systolic increased [Unknown]
  - Paranasal sinus hypersecretion [Not Recovered/Not Resolved]
  - Blood pressure fluctuation [Unknown]
  - Hallucination [Unknown]

NARRATIVE: CASE EVENT DATE: 2012
